FAERS Safety Report 20684880 (Version 7)
Quarter: 2022Q3

REPORT INFORMATION
  Report Type: Report from Study
  Country: CA (occurrence: None)
  Receive Date: 20220407
  Receipt Date: 20220923
  Transmission Date: 20221027
  Serious: Yes (Hospitalization)
  Sender: FDA-Public Use
  Company Number: CA-ROCHE-3067653

PATIENT
  Age: 53 Year
  Sex: Male
  Weight: 59 kg

DRUGS (19)
  1. COBIMETINIB [Suspect]
     Active Substance: COBIMETINIB
     Indication: Metastatic malignant melanoma
     Dosage: ON 31/MAR/2022, AT 09:00 AM RECEIVED MOST RECENT DOSE OF COBIMETINIB 20 MG PRIOR TO SAE.
     Route: 048
     Dates: start: 20220223
  2. MINOCYCLINE [Concomitant]
     Active Substance: MINOCYCLINE HYDROCHLORIDE
     Indication: Dermatitis acneiform
     Route: 048
     Dates: start: 20220303, end: 20220401
  3. HYDROCORTISONE [Concomitant]
     Active Substance: HYDROCORTISONE
     Indication: Dermatitis acneiform
     Route: 061
     Dates: start: 20220307, end: 20220401
  4. LORATADINE [Concomitant]
     Active Substance: LORATADINE
     Indication: Dermatitis acneiform
     Route: 048
     Dates: start: 20220311, end: 20220401
  5. PREDNISONE [Concomitant]
     Active Substance: PREDNISONE
     Indication: Dermatitis acneiform
     Route: 048
     Dates: start: 20220316, end: 20220401
  6. TACROLIMUS [Concomitant]
     Active Substance: TACROLIMUS
     Indication: Dermatitis acneiform
     Route: 061
     Dates: start: 20220312, end: 20220401
  7. HYDROCORTISONE [Concomitant]
     Active Substance: HYDROCORTISONE
     Indication: Dermatitis acneiform
     Route: 061
     Dates: start: 20220303, end: 20220401
  8. SODIUM CHLORIDE [Concomitant]
     Active Substance: SODIUM CHLORIDE
     Indication: Dehydration
     Route: 042
     Dates: start: 20220308, end: 20220308
  9. PROCHLORPERAZINE [Concomitant]
     Active Substance: PROCHLORPERAZINE
     Indication: Nausea
     Route: 048
     Dates: start: 20220308, end: 20220411
  10. CALCIUM CARBONATE [Concomitant]
     Active Substance: CALCIUM CARBONATE
     Indication: Hypocalcaemia
     Route: 048
     Dates: start: 20220316, end: 20220401
  11. ZOPICLONE [Concomitant]
     Active Substance: ZOPICLONE
     Indication: Insomnia
     Route: 048
     Dates: start: 20210701, end: 20220401
  12. CELECOXIB [Concomitant]
     Active Substance: CELECOXIB
     Indication: Pain
     Route: 048
     Dates: start: 20211201, end: 20220401
  13. ACETAMINOPHEN [Concomitant]
     Active Substance: ACETAMINOPHEN
     Indication: Pain
     Route: 048
     Dates: start: 20211201, end: 20220401
  14. HYDROMORPHONE [Concomitant]
     Active Substance: HYDROMORPHONE
     Indication: Pain
     Route: 048
     Dates: start: 20210221, end: 20220411
  15. BISMUTH SUBSALICYLATE [Concomitant]
     Active Substance: BISMUTH SUBSALICYLATE
     Dosage: PROPHYLAXIS - HELICOBACTER PYLORI ERADICATION
     Route: 048
     Dates: start: 20220426
  16. METRONIDAZOLE [Concomitant]
     Active Substance: METRONIDAZOLE
     Dosage: HELICOBACTER PYLORI ERADICATION
     Route: 048
     Dates: start: 20220426
  17. TETRACYCLINE [Concomitant]
     Active Substance: TETRACYCLINE
     Dosage: HELICOBACTER PYLORI ERADICATION
     Route: 048
     Dates: start: 20220426
  18. PANTOPRAZOLE [Concomitant]
     Active Substance: PANTOPRAZOLE
     Dosage: HELICOBACTER PYLORI ERADICATION
     Route: 048
     Dates: start: 20220426
  19. IMODIUM [Concomitant]
     Active Substance: LOPERAMIDE HYDROCHLORIDE
     Indication: Diarrhoea
     Route: 048
     Dates: start: 20220301, end: 20220320

REACTIONS (1)
  - Duodenal perforation [Recovered/Resolved]

NARRATIVE: CASE EVENT DATE: 20220331
